FAERS Safety Report 9520743 (Version 1)
Quarter: 2013Q1

REPORT INFORMATION
  Report Type: Spontaneous
  Country: US (occurrence: None)
  Receive Date: 20130305
  Receipt Date: 20130305
  Transmission Date: 20140127
  Serious: Yes (Other)
  Sender: FDA-Public Use
  Company Number: 163-21880-12012354

PATIENT
  Age: 80 Year
  Sex: Male

DRUGS (10)
  1. REVLIMID [Suspect]
     Indication: MYELOFIBROSIS
     Route: 048
     Dates: start: 20120110
  2. VENLAFAXANE HCI (VENLAFAXINE) [Concomitant]
  3. TYLENOL (PARACETAMOL) [Concomitant]
  4. TRAMADOL HCI (TRAMADOL) [Concomitant]
  5. PREDNISOLONE (PREDNISOLONE) [Concomitant]
  6. SODIUM PHOSPHATE (SODIUM PHOSPHATE) [Concomitant]
  7. OFLOXACIN (OFLOXACIN) [Concomitant]
  8. LIPITOR (ATORVASTATIN) [Concomitant]
  9. FOLIC ACID (FOLIC ACID) [Concomitant]
  10. FINASTERIDE (FINASTERIDE) [Concomitant]

REACTIONS (1)
  - Hallucination [None]
